FAERS Safety Report 6126957-9 (Version None)
Quarter: 2009Q1

REPORT INFORMATION
  Report Type: 
  Country: None (occurrence: None)
  Receive Date: 20090320
  Receipt Date: 20081027
  Transmission Date: 20090719
  Serious: No
  Sender: FDA-Public Use
  Company Number: US-ABBOTT-08P-163-0484046-00

PATIENT
  Sex: Female

DRUGS (1)
  1. ERYTHROMYCIN BASE [Suspect]
     Indication: INFECTION
     Route: 048
     Dates: start: 19990101

REACTIONS (4)
  - DRUG HYPERSENSITIVITY [None]
  - LIP SWELLING [None]
  - PRURITUS [None]
  - URTICARIA [None]
